FAERS Safety Report 7126264-1 (Version None)
Quarter: 2010Q4

REPORT INFORMATION
  Report Type: 
  Country: None (occurrence: None)
  Receive Date: 20101129
  Receipt Date: 20101119
  Transmission Date: 20110411
  Serious: Yes (Hospitalization)
  Sender: FDA-Public Use
  Company Number: DE-ABBOTT-10P-062-0686920-00

PATIENT
  Sex: Female

DRUGS (3)
  1. HUMIRA [Suspect]
     Indication: CROHN'S DISEASE
     Route: 058
     Dates: start: 20100507, end: 20101001
  2. UNKNOWN DRUG FOR THYROIDECTOMY [Concomitant]
     Indication: THYROIDECTOMY
  3. CORTISONE [Concomitant]
     Indication: CROHN'S DISEASE

REACTIONS (3)
  - DYSPNOEA [None]
  - PARALYSIS [None]
  - TREMOR [None]
